FAERS Safety Report 19917626 (Version 1)
Quarter: 2021Q4

REPORT INFORMATION
  Report Type: Spontaneous
  Country: US (occurrence: US)
  Receive Date: 20211005
  Receipt Date: 20211005
  Transmission Date: 20220303
  Serious: Yes (Other)
  Sender: FDA-Public Use
  Company Number: US-BIOCODEX2-2021001126

PATIENT

DRUGS (6)
  1. DIACOMIT [Suspect]
     Active Substance: STIRIPENTOL
     Indication: Epilepsy
     Dosage: 250MG,DISSOLVE 2 PACKS IN 10ML OF WARM WATER AND GIVE TWICE A DAY
     Route: 065
     Dates: start: 20210309
  2. DIACOMIT [Suspect]
     Active Substance: STIRIPENTOL
     Indication: Severe myoclonic epilepsy of infancy
     Dosage: IN JULY-AUGUST 250MG [1 SACHET] IN THE MORNING AND 500MG [2 SACHETS] IN THE EVENING,
     Route: 065
  3. DIACOMIT [Suspect]
     Active Substance: STIRIPENTOL
     Dosage: PATIENT^S PARENTS DECIDED TO DECREASE DIACOMIT DOSE TO 250MG IN THE MORNING AND 250MG IN THE EVENING
  4. DIACOMIT [Suspect]
     Active Substance: STIRIPENTOL
     Dosage: INCREASE THE EVENING DOSE TO 500MG.
     Route: 065
     Dates: start: 20210911
  5. DIACOMIT [Suspect]
     Active Substance: STIRIPENTOL
     Dosage: THE PARENTS DECREASED DIACOMIT DOSE TO 250MG IN THE MORNING AND 250MG IN THE EVENING.
  6. ONFI [Concomitant]
     Active Substance: CLOBAZAM
     Indication: Product used for unknown indication
     Route: 065

REACTIONS (1)
  - Seizure [Unknown]
